FAERS Safety Report 9511541 (Version 2)
Quarter: 2014Q1

REPORT INFORMATION
  Report Type: Spontaneous
  Country: US (occurrence: None)
  Receive Date: 20130305
  Receipt Date: 20140306
  Transmission Date: 20141002
  Serious: Yes (Other)
  Sender: FDA-Public Use
  Company Number: 163-21880-12111726

PATIENT
  Age: 77 Year
  Sex: Male

DRUGS (3)
  1. REVLIMID [Suspect]
     Indication: PLASMA CELL MYELOMA
     Dosage: 25 MG, 21 IN 28 D, PO
     Route: 048
     Dates: start: 20090609
  2. FLU SHOT (INFLUENZA VACCINES) [Concomitant]
  3. SHINGLES VACCINE (HERPES VIRUS VACCINE) [Concomitant]

REACTIONS (7)
  - Viral infection [None]
  - Rhinorrhoea [None]
  - Oropharyngeal pain [None]
  - Cough [None]
  - Injection site erythema [None]
  - Pruritus [None]
  - Chronic sinusitis [None]
